FAERS Safety Report 5571869-2 (Version None)
Quarter: 2007Q4

REPORT INFORMATION
  Report Type: 
  Country: None (occurrence: None)
  Receive Date: 20071221
  Receipt Date: 20071211
  Transmission Date: 20080405
  Serious: Yes (Hospitalization)
  Sender: FDA-Public Use
  Company Number: DE-BAYER-DE-2007-043343

PATIENT
  Age: 49 Year
  Sex: Female
  Weight: 72 kg

DRUGS (2)
  1. BETASERON [Suspect]
     Indication: MULTIPLE SCLEROSIS
     Route: 058
  2. SIFROL [Concomitant]
     Route: 065

REACTIONS (5)
  - ABDOMINAL ABSCESS [None]
  - FLANK PAIN [None]
  - INJECTION SITE ABSCESS [None]
  - INJECTION SITE NECROSIS [None]
  - LOCAL REACTION [None]
